FAERS Safety Report 24200689 (Version 1)
Quarter: 2024Q3

REPORT INFORMATION
  Report Type: Spontaneous
  Country: US (occurrence: US)
  Receive Date: 20240812
  Receipt Date: 20240812
  Transmission Date: 20241017
  Serious: No
  Sender: DR REDDYS
  Company Number: US-E2BLSMVVAL-SPO/USA/24/0011400

PATIENT
  Age: 30 Year
  Sex: Female

DRUGS (2)
  1. ACCUTANE [Suspect]
     Active Substance: ISOTRETINOIN
     Indication: Product used for unknown indication
     Dosage: SUPPOSED TO BE TAKING 2 TABLETS A DAY, ONE IN MORNING AND 1 IN EVENING
     Route: 065
     Dates: start: 20240401
  2. ACCUTANE [Suspect]
     Active Substance: ISOTRETINOIN
     Dosage: SUPPOSED TO BE TAKING 2 TABLETS A DAY, ONE IN MORNING AND 1 IN EVENING STARTED TAKING ONE.
     Route: 065

REACTIONS (3)
  - Lip injury [Unknown]
  - Hypersensitivity [Unknown]
  - Skin disorder [Unknown]

NARRATIVE: CASE EVENT DATE: 20240601
